FAERS Safety Report 18517342 (Version 1)
Quarter: 2020Q4

REPORT INFORMATION
  Report Type: Spontaneous
  Country: US (occurrence: US)
  Receive Date: 20201118
  Receipt Date: 20201118
  Transmission Date: 20210114
  Serious: Yes (Life-Threatening, Hospitalization)
  Sender: FDA-Public Use
  Company Number: None

PATIENT
  Age: 80 Year
  Sex: Female

DRUGS (3)
  1. FUROSEMIDE. [Suspect]
     Active Substance: FUROSEMIDE
  2. LISINOPRIL. [Suspect]
     Active Substance: LISINOPRIL
  3. METFORMIN [Suspect]
     Active Substance: METFORMIN HYDROCHLORIDE

REACTIONS (5)
  - Hypokalaemia [None]
  - Confusional state [None]
  - Urinary tract infection [None]
  - Renal impairment [None]
  - Hypotension [None]

NARRATIVE: CASE EVENT DATE: 20200702
